FAERS Safety Report 6755956-9 (Version None)
Quarter: 2010Q2

REPORT INFORMATION
  Report Type: 
  Country: None (occurrence: None)
  Receive Date: 20100604
  Receipt Date: 20100527
  Transmission Date: 20101027
  Serious: Yes (Other)
  Sender: FDA-Public Use
  Company Number: CZ-SP-2010-03051

PATIENT

DRUGS (1)
  1. BCG  THERAPEUTICS [Suspect]
     Indication: BLADDER TRANSITIONAL CELL CARCINOMA
     Dosage: NOT REPORTED
     Route: 043

REACTIONS (1)
  - ADVERSE EVENT [None]
